FAERS Safety Report 8923486 (Version 1)
Quarter: 2012Q4

REPORT INFORMATION
  Report Type: 
  Country: US (occurrence: US)
  Receive Date: 20121123
  Receipt Date: 20121123
  Transmission Date: 20130627
  Serious: Yes (Other)
  Sender: FDA-Public Use
  Company Number: US-PFIZER INC-2012291099

PATIENT
  Sex: Female

DRUGS (1)
  1. PREMARIN VAGINAL CREAM [Suspect]
     Dosage: UNK
     Route: 067
     Dates: start: 20121117

REACTIONS (2)
  - Pyrexia [Unknown]
  - Pelvic pain [Unknown]
